FAERS Safety Report 21896178 (Version 1)
Quarter: 2023Q1

REPORT INFORMATION
  Report Type: Spontaneous
  Country: RU (occurrence: RU)
  Receive Date: 20230123
  Receipt Date: 20230123
  Transmission Date: 20230418
  Serious: Yes (Life-Threatening, Other)
  Sender: FDA-Public Use
  Company Number: RU-AMGEN-RUSSP2023009009

PATIENT

DRUGS (1)
  1. PANITUMUMAB [Suspect]
     Active Substance: PANITUMUMAB
     Indication: Colorectal cancer metastatic
     Dosage: UNK
     Route: 065

REACTIONS (10)
  - Colorectal cancer metastatic [Unknown]
  - Skin toxicity [Unknown]
  - Pruritus [Unknown]
  - Oedema [Unknown]
  - Dermatitis acneiform [Unknown]
  - Xerosis [Unknown]
  - Paronychia [Unknown]
  - Skin fissures [Unknown]
  - Hyperkeratosis [Unknown]
  - Corneal disorder [Unknown]
